FAERS Safety Report 7367171-9 (Version None)
Quarter: 2011Q1

REPORT INFORMATION
  Report Type: 
  Country: None (occurrence: None)
  Receive Date: 20110322
  Receipt Date: 20110316
  Transmission Date: 20110831
  Serious: Yes (Hospitalization, Other)
  Sender: FDA-Public Use
  Company Number: US-PFIZER INC-2011058429

PATIENT
  Sex: Female

DRUGS (2)
  1. ZYVOX [Suspect]
     Dosage: UNK
     Route: 042
     Dates: start: 20110101, end: 20110301
  2. ZYVOX [Suspect]
     Dosage: UNK
     Route: 048
     Dates: end: 20110101

REACTIONS (1)
  - PNEUMONIA [None]
